FAERS Safety Report 17938831 (Version 2)
Quarter: 2020Q2

REPORT INFORMATION
  Report Type: Report from Study
  Country: None (occurrence: US)
  Receive Date: 20200625
  Receipt Date: 20200629
  Transmission Date: 20200714
  Serious: Yes (Hospitalization)
  Sender: FDA-Public Use
  Company Number: US-ABBVIE-20K-163-3234938-00

PATIENT
  Age: 80 Year
  Sex: Female
  Weight: 59.47 kg

DRUGS (1)
  1. HUMIRA [Suspect]
     Active Substance: ADALIMUMAB
     Indication: CROHN^S DISEASE
     Route: 058
     Dates: end: 202002

REACTIONS (5)
  - Colon cancer [Recovering/Resolving]
  - Weight decreased [Recovering/Resolving]
  - Hernia [Recovering/Resolving]
  - Malaise [Recovering/Resolving]
  - Precancerous condition [Unknown]

NARRATIVE: CASE EVENT DATE: 2020
